FAERS Safety Report 6013727-5 (Version None)
Quarter: 2008Q4

REPORT INFORMATION
  Report Type: 
  Country: None (occurrence: None)
  Receive Date: 20081219
  Receipt Date: 20081219
  Transmission Date: 20090506
  Serious: Yes (Death, Hospitalization)
  Sender: FDA-Public Use
  Company Number: A0761124A

PATIENT
  Age: 83 Year
  Sex: Female
  Weight: 85 kg

DRUGS (4)
  1. SERETIDE [Suspect]
     Indication: BRONCHITIS
     Route: 055
     Dates: start: 20060101, end: 20081206
  2. TEOLONG [Concomitant]
     Dates: start: 20080901, end: 20081201
  3. LOSARTAN POTASSIUM [Concomitant]
     Dates: start: 20071201, end: 20081201
  4. LEVOTHYROXINE SODIUM [Concomitant]
     Dates: start: 19980101, end: 20080101

REACTIONS (1)
  - DEATH [None]
